FAERS Safety Report 9683956 (Version 4)
Quarter: 2020Q1

REPORT INFORMATION
  Report Type: Spontaneous
  Country: FR (occurrence: FR)
  Receive Date: 20131112
  Receipt Date: 20200313
  Transmission Date: 20200409
  Serious: Yes (Hospitalization, Other)
  Sender: FDA-Public Use
  Company Number: FR-SA-2013SA114079

PATIENT
  Age: 92 Year
  Sex: Female
  Weight: 55 kg

DRUGS (12)
  1. LASILIX [Suspect]
     Active Substance: FUROSEMIDE
     Dosage: 1 DF,QD
     Route: 048
  2. BETAHISTINE HYDROCHLORIDE [Suspect]
     Active Substance: BETAHISTINE HYDROCHLORIDE
     Dosage: 2 DF,QD
     Route: 048
  3. CALCIPARINE [Suspect]
     Active Substance: HEPARIN CALCIUM
     Indication: PRODUCT USED FOR UNKNOWN INDICATION
     Route: 065
  4. DOLIPRANE [Suspect]
     Active Substance: ACETAMINOPHEN
     Dosage: UNK UNK,UNK
     Route: 048
  5. ACETYLLEUCINE [Suspect]
     Active Substance: ACETYLLEUCINE
     Dosage: 1500 MG, QD
     Route: 048
  6. LATANOPROST. [Suspect]
     Active Substance: LATANOPROST
     Dosage: 1 DROP, QD
     Route: 047
  7. DICLOFENAC DIETHYLAMINE [Suspect]
     Active Substance: DICLOFENAC DIETHYLAMINE
     Dosage: UNK UNK,UNK
     Route: 003
  8. EUPANTOL [Suspect]
     Active Substance: PANTOPRAZOLE SODIUM
     Indication: PRODUCT USED FOR UNKNOWN INDICATION
     Dosage: 1 DF,QD
     Route: 048
     Dates: end: 20131023
  9. DABIGATRAN [Suspect]
     Active Substance: DABIGATRAN
     Dosage: 150 MG, QD
     Route: 048
  10. AMLODIPINE BESILATE/PERINDOPRIL ARGININE [Suspect]
     Active Substance: AMLODIPINE BESYLATE\PERINDOPRIL ARGININE
     Dosage: 1 DF,QD
     Route: 048
  11. CALCIUM CARBONATE/COLECALCIFEROL [Suspect]
     Active Substance: CALCIUM CARBONATE\CHOLECALCIFEROL
     Dosage: 1 DF,QD
     Route: 048
  12. PHYSIOTENS [Suspect]
     Active Substance: MOXONIDINE
     Indication: PRODUCT USED FOR UNKNOWN INDICATION
     Dosage: 0.2 MG, QD
     Route: 048

REACTIONS (4)
  - Faeces discoloured [Recovered/Resolved]
  - Anaemia [Not Recovered/Not Resolved]
  - Gingival bleeding [Recovered/Resolved]
  - Renal failure [Recovered/Resolved]

NARRATIVE: CASE EVENT DATE: 201310
